FAERS Safety Report 5989421-3 (Version None)
Quarter: 2008Q4

REPORT INFORMATION
  Report Type: 
  Country: None (occurrence: None)
  Receive Date: 20081205
  Receipt Date: 20081120
  Transmission Date: 20090506
  Serious: Yes (Congenital Anomaly)
  Sender: FDA-Public Use
  Company Number: 8038009

PATIENT
  Sex: Male
  Weight: 2.72 kg

DRUGS (5)
  1. KEPPRA [Suspect]
     Indication: EPILEPSY
     Dosage: 750 MG 2/D TRP
     Route: 064
     Dates: end: 20080801
  2. VITAMIN TAB [Concomitant]
  3. FOLIC ACID [Concomitant]
  4. CELEXA [Concomitant]
  5. EXPECTALIN [Concomitant]

REACTIONS (2)
  - ACROCHORDON [None]
  - MATERNAL DRUGS AFFECTING FOETUS [None]
